FAERS Safety Report 8854826 (Version 1)
Quarter: 2012Q4

REPORT INFORMATION
  Report Type: 
  Country: US (occurrence: US)
  Receive Date: 20121023
  Receipt Date: 20121023
  Transmission Date: 20130627
  Serious: Yes (Congenital Anomaly, Other)
  Sender: FDA-Public Use
  Company Number: US-ELI_LILLY_AND_COMPANY-US201210004347

PATIENT

DRUGS (2)
  1. PROZAC [Suspect]
     Dosage: UNK, unknown
     Route: 064
  2. CELEXA [Concomitant]
     Route: 064

REACTIONS (7)
  - Atrial septal defect [Unknown]
  - Persistent foetal circulation [Unknown]
  - Congenital aortic anomaly [Unknown]
  - Otitis media chronic [Unknown]
  - Adenoiditis [Unknown]
  - Chronic sinusitis [Unknown]
  - Foetal exposure during pregnancy [Recovered/Resolved]
